FAERS Safety Report 22532840 (Version 1)
Quarter: 2023Q2

REPORT INFORMATION
  Report Type: Spontaneous
  Country: FR (occurrence: FR)
  Receive Date: 20230607
  Receipt Date: 20230607
  Transmission Date: 20230721
  Serious: Yes (Hospitalization)
  Sender: FDA-Public Use
  Company Number: FR-002147023-PHHY2019FR090497

PATIENT
  Age: 28 Year
  Sex: Female
  Weight: 85 kg

DRUGS (25)
  1. CYCLOSPORINE [Suspect]
     Active Substance: CYCLOSPORINE
     Indication: Psoriasis
     Dosage: 150 MG, QD(75 MG, 2X/DAY)
     Route: 048
     Dates: start: 20131120, end: 20140514
  2. CYCLOSPORINE [Suspect]
     Active Substance: CYCLOSPORINE
     Dosage: 100 MG, QD(50 MG, 2X/DAY)
     Route: 048
     Dates: start: 20140514, end: 201409
  3. CYCLOSPORINE [Suspect]
     Active Substance: CYCLOSPORINE
     Dosage: 100 MG, QD(50 MG, 2X/DAY)
     Route: 048
     Dates: start: 20141112, end: 20150211
  4. CYCLOSPORINE [Suspect]
     Active Substance: CYCLOSPORINE
     Dosage: 200 MG, QD(100 MG, 2X/DAY)
     Route: 048
     Dates: start: 20180430, end: 20181109
  5. CYCLOSPORINE [Suspect]
     Active Substance: CYCLOSPORINE
     Dosage: 250 MG, QD(125 MG, 2X/DAY)
     Route: 048
     Dates: start: 20181109
  6. ETANERCEPT [Suspect]
     Active Substance: ETANERCEPT
     Indication: Psoriasis
     Dosage: 100 MG, QW (50 MG, 2X/WEEK)
     Route: 058
     Dates: start: 20170710, end: 20170918
  7. METHOTREXATE SODIUM [Suspect]
     Active Substance: METHOTREXATE SODIUM
     Indication: Psoriasis
     Dosage: 15 MG, QW
     Route: 065
     Dates: start: 20150211, end: 20170403
  8. METHOTREXATE SODIUM [Suspect]
     Active Substance: METHOTREXATE SODIUM
     Dosage: 20 MG, QW
     Route: 048
     Dates: start: 20170403, end: 201704
  9. METHOTREXATE SODIUM [Suspect]
     Active Substance: METHOTREXATE SODIUM
     Dosage: 25 MG, QW
     Route: 048
     Dates: start: 201704, end: 20170510
  10. REMICADE [Suspect]
     Active Substance: INFLIXIMAB
     Indication: Psoriasis
     Dosage: 425 MG, CYCLIC (EVERY 2 WEEKS)
     Route: 042
     Dates: start: 20170918, end: 20171002
  11. REMICADE [Suspect]
     Active Substance: INFLIXIMAB
     Dosage: 425 MG, CYCLIC (EVERY 4 WEEKS)
     Route: 042
     Dates: start: 20171002, end: 20171030
  12. REMICADE [Suspect]
     Active Substance: INFLIXIMAB
     Dosage: 425 MG, CYCLIC (EVERY 6 WEEKS)
     Route: 042
     Dates: start: 20171030, end: 20171211
  13. REMICADE [Suspect]
     Active Substance: INFLIXIMAB
     Dosage: 425 MG, CYCLIC (EVERY 8 WEEKS)
     Route: 042
     Dates: start: 20171211, end: 20180205
  14. REMICADE [Suspect]
     Active Substance: INFLIXIMAB
     Dosage: 425 MG, CYCLIC (EVERY 7 WEEKS)
     Route: 042
     Dates: start: 20180205
  15. REMICADE [Suspect]
     Active Substance: INFLIXIMAB
     Dosage: 425 MG, CYCLIC (EVERY 7 WEEKS)
     Route: 042
     Dates: start: 20180326
  16. NERISONE GRAS [Concomitant]
     Indication: Product used for unknown indication
     Dosage: UNK
     Route: 065
  17. SILVER SULFADIAZINE [Concomitant]
     Active Substance: SILVER SULFADIAZINE
     Indication: Product used for unknown indication
     Dosage: UNK
     Route: 065
  18. DERMOVAL [Concomitant]
     Indication: Product used for unknown indication
     Dosage: UNK
     Route: 065
  19. DIPROSONE [Concomitant]
     Active Substance: BETAMETHASONE DIPROPIONATE
     Indication: Product used for unknown indication
     Dosage: UNK
     Route: 065
  20. DOLIPRANE [Concomitant]
     Active Substance: ACETAMINOPHEN
     Indication: Product used for unknown indication
     Dosage: UNK
     Route: 065
  21. CLOBETASOL PROPIONATE [Concomitant]
     Active Substance: CLOBETASOL PROPIONATE
     Indication: Product used for unknown indication
     Dosage: UNK
     Route: 065
  22. FOLIC ACID [Concomitant]
     Active Substance: FOLIC ACID
     Indication: Product used for unknown indication
     Dosage: UNK
     Route: 065
  23. CETIRIZINE HYDROCHLORIDE [Concomitant]
     Active Substance: CETIRIZINE HYDROCHLORIDE
     Indication: Product used for unknown indication
     Dosage: UNK
     Route: 065
  24. DIPROLENE [Concomitant]
     Active Substance: BETAMETHASONE DIPROPIONATE
     Indication: Product used for unknown indication
     Dosage: UNK
     Route: 065
  25. BETAMETHASONE DIPROPIONATE [Concomitant]
     Active Substance: BETAMETHASONE DIPROPIONATE
     Indication: Product used for unknown indication
     Dosage: UNK
     Route: 065

REACTIONS (2)
  - Alopecia universalis [Recovering/Resolving]
  - Rash [Recovered/Resolved]

NARRATIVE: CASE EVENT DATE: 20170626
